FAERS Safety Report 7234780-7 (Version None)
Quarter: 2011Q1

REPORT INFORMATION
  Report Type: 
  Country: None (occurrence: None)
  Receive Date: 20110120
  Receipt Date: 20110114
  Transmission Date: 20110831
  Serious: Yes (Death)
  Sender: FDA-Public Use
  Company Number: GB-TEVA-263308ISR

PATIENT
  Age: 63 Year
  Sex: Female

DRUGS (2)
  1. DIAZEPAM [Suspect]
  2. METHADONE HCL [Suspect]
     Indication: PAIN
     Dates: start: 20100304, end: 20100309

REACTIONS (1)
  - TOXICITY TO VARIOUS AGENTS [None]
